FAERS Safety Report 5885769-1 (Version None)
Quarter: 2008Q3

REPORT INFORMATION
  Report Type: 
  Country: None (occurrence: None)
  Receive Date: 20080916
  Receipt Date: 20080908
  Transmission Date: 20090109
  Serious: Yes (Other)
  Sender: FDA-Public Use
  Company Number: US-ELI_LILLY_AND_COMPANY-US200808004005

PATIENT
  Sex: Male

DRUGS (4)
  1. HUMALOG [Suspect]
     Dates: start: 20000101
  2. LANTUS [Concomitant]
     Indication: DIABETES MELLITUS
     Dates: start: 20000101
  3. COZAAR [Concomitant]
     Dosage: 100 MG, UNK
  4. PRAVASTATIN [Concomitant]

REACTIONS (2)
  - BLOOD GLUCOSE DECREASED [None]
  - HYPOGLYCAEMIC UNCONSCIOUSNESS [None]
